FAERS Safety Report 6381530-2 (Version None)
Quarter: 2009Q3

REPORT INFORMATION
  Report Type: 
  Country: None (occurrence: None)
  Receive Date: 20090925
  Receipt Date: 20090922
  Transmission Date: 20100115
  Serious: Yes (Other)
  Sender: FDA-Public Use
  Company Number: ADR30372009

PATIENT
  Age: 62 Year
  Sex: Male

DRUGS (4)
  1. SIMVASTATIN [Suspect]
     Dosage: ORAL
     Route: 048
  2. ATENOLOL [Suspect]
  3. ASPIRIN [Concomitant]
  4. CARBAMAZEPINE [Concomitant]

REACTIONS (5)
  - ATRIAL FLUTTER [None]
  - ATRIOVENTRICULAR BLOCK [None]
  - BUNDLE BRANCH BLOCK RIGHT [None]
  - HEAD INJURY [None]
  - SYNCOPE [None]
